FAERS Safety Report 13953765 (Version 1)
Quarter: 2017Q3

REPORT INFORMATION
  Report Type: Spontaneous
  Country: GB (occurrence: GB)
  Receive Date: 20170911
  Receipt Date: 20170911
  Transmission Date: 20171128
  Serious: Yes (Hospitalization)
  Sender: FDA-Public Use
  Company Number: PHHY2017GB131797

PATIENT
  Sex: Female

DRUGS (1)
  1. FEMARA [Suspect]
     Active Substance: LETROZOLE
     Indication: INFERTILITY FEMALE
     Dosage: 2.5 MG, QD
     Route: 048

REACTIONS (2)
  - Haemorrhagic cyst [Recovered/Resolved]
  - Product use in unapproved indication [Unknown]
